FAERS Safety Report 6919815-0 (Version None)
Quarter: 2010Q3

REPORT INFORMATION
  Report Type: 
  Country: None (occurrence: None)
  Receive Date: 20100810
  Receipt Date: 20100810
  Transmission Date: 20110219
  Serious: Yes (Life-Threatening, Hospitalization)
  Sender: FDA-Public Use
  Company Number: None

PATIENT
  Sex: Male
  Weight: 37.6 kg

DRUGS (1)
  1. POLYMYXIN B SULFATES AND TRIMETHOPRIM SULFATE [Suspect]
     Indication: CONJUNCTIVITIS
     Dosage: 3 DROPS 3 TIMES DAILY OPHTHALMIC, 1 DOSE
     Route: 047
     Dates: start: 20100803, end: 20100803

REACTIONS (2)
  - ADENOVIRUS INFECTION [None]
  - TOXIC EPIDERMAL NECROLYSIS [None]
